FAERS Safety Report 6155152-2 (Version None)
Quarter: 2009Q2

REPORT INFORMATION
  Report Type: 
  Country: None (occurrence: None)
  Receive Date: 20090415
  Receipt Date: 20090409
  Transmission Date: 20091009
  Serious: Yes (Hospitalization)
  Sender: FDA-Public Use
  Company Number: JP-JNJFOC-20090400701

PATIENT
  Sex: Male
  Weight: 54 kg

DRUGS (23)
  1. FENTANYL [Suspect]
     Route: 062
  2. FENTANYL [Suspect]
     Route: 062
  3. FENTANYL [Suspect]
     Route: 062
  4. FENTANYL [Suspect]
     Indication: PAIN
     Route: 062
  5. FENTANYL [Suspect]
     Indication: DRUG USE FOR UNKNOWN INDICATION
     Route: 062
  6. NERUTROPIN [Concomitant]
     Indication: PAIN
     Route: 048
  7. GABAPEN [Concomitant]
     Indication: PAIN
     Route: 048
  8. LANDSEN [Concomitant]
     Indication: PAIN
     Route: 048
  9. NORTRIPTYLINE HCL [Concomitant]
     Indication: PAIN
     Route: 048
  10. INTEBAN [Concomitant]
     Indication: PAIN
     Route: 061
  11. VOLTAREN [Concomitant]
     Indication: PYREXIA
     Route: 061
  12. VOLTAREN [Concomitant]
     Indication: MUSCULOSKELETAL STIFFNESS
     Route: 061
  13. BLOPRESS [Concomitant]
     Indication: HYPERTENSION
     Route: 048
  14. NORVASC [Concomitant]
     Indication: HYPERTENSION
     Route: 048
  15. MAGMITT [Concomitant]
     Route: 048
  16. MAGMITT [Concomitant]
     Indication: CONSTIPATION
     Route: 048
  17. SILECE [Concomitant]
     Indication: POST HERPETIC NEURALGIA
     Route: 048
  18. GASTER D [Concomitant]
     Indication: PROPHYLAXIS AGAINST GASTROINTESTINAL ULCER
     Route: 048
  19. KARY UNI [Concomitant]
     Indication: CATARACT
     Route: 031
  20. GLYCERIN [Concomitant]
     Indication: CONSTIPATION
     Route: 054
  21. NOVAMIN [Concomitant]
     Indication: NAUSEA
     Route: 048
  22. PURSENNID [Concomitant]
     Indication: CONSTIPATION
     Route: 048
  23. NABOAL [Concomitant]
     Indication: MUSCULOSKELETAL STIFFNESS
     Route: 061

REACTIONS (3)
  - ABNORMAL BEHAVIOUR [None]
  - AMNESIA [None]
  - ECZEMA [None]
